FAERS Safety Report 4620826-9 (Version None)
Quarter: 2005Q2

REPORT INFORMATION
  Report Type: 
  Country: None (occurrence: None)
  Receive Date: 20050315
  Receipt Date: 20050201
  Transmission Date: 20051028
  Serious: No
  Sender: FDA-Public Use
  Company Number: US-YAMANOUCHI-YPA20050054

PATIENT
  Age: 75 Year
  Sex: Female
  Weight: 59.8748 kg

DRUGS (8)
  1. VESICARE [Suspect]
     Indication: HYPERTONIC BLADDER
     Dosage: 5 MG QD PO
     Route: 048
     Dates: start: 20050127, end: 20050129
  2. VESICARE [Suspect]
     Indication: HYPERTONIC BLADDER
     Dosage: 5 MG QD, PO
     Route: 048
     Dates: start: 20050131, end: 20050131
  3. DETROL [Concomitant]
  4. PROTONIX [Concomitant]
  5. MOTRIN [Concomitant]
  6. M.V.I. [Concomitant]
  7. VITAMIN E [Concomitant]
  8. GLUCOSAMINE/CHOND [Concomitant]

REACTIONS (3)
  - ARTHRALGIA [None]
  - BACK PAIN [None]
  - MUSCLE TWITCHING [None]
